FAERS Safety Report 8175391-9 (Version None)
Quarter: 2012Q1

REPORT INFORMATION
  Report Type: 
  Country: None (occurrence: None)
  Receive Date: 20120229
  Receipt Date: 20120224
  Transmission Date: 20120608
  Serious: Yes (Other)
  Sender: FDA-Public Use
  Company Number: GB-PFIZER INC-2012050625

PATIENT
  Age: 38 Year
  Sex: Male

DRUGS (3)
  1. SANDO K [Concomitant]
  2. AMILORIDE [Concomitant]
  3. SERTRALINE HYDROCHLORIDE [Suspect]
     Indication: DEPRESSION
     Dosage: 50 MG, 1X/DAY

REACTIONS (1)
  - BLOOD POTASSIUM INCREASED [None]
